FAERS Safety Report 5714779-X (Version None)
Quarter: 2008Q2

REPORT INFORMATION
  Report Type: 
  Country: None (occurrence: None)
  Receive Date: 20080423
  Receipt Date: 20060920
  Transmission Date: 20081010
  Serious: Yes (Death)
  Sender: FDA-Public Use
  Company Number: DE-ROCHE-463889

PATIENT
  Sex: Female
  Weight: 87 kg

DRUGS (5)
  1. CAPECITABINE [Suspect]
     Dosage: LAST DOSE PRIOR TO SAE 08/05/2006
     Route: 048
     Dates: start: 20060404, end: 20060509
  2. TOREM [Concomitant]
  3. ESIDRIX [Concomitant]
  4. AVANDIA [Concomitant]
  5. PANTOZOL [Concomitant]

REACTIONS (1)
  - PNEUMONIA [None]
